FAERS Safety Report 8412370-8 (Version None)
Quarter: 2012Q2

REPORT INFORMATION
  Report Type: 
  Country: None (occurrence: None)
  Receive Date: 20120605
  Receipt Date: 20120525
  Transmission Date: 20120825
  Serious: Yes (Hospitalization)
  Sender: FDA-Public Use
  Company Number: FR-SANOFI-AVENTIS-2012SA037271

PATIENT
  Age: 88 Year
  Sex: Male

DRUGS (8)
  1. ATORVASTATIN [Concomitant]
     Route: 048
  2. ALISKIREN [Concomitant]
     Route: 048
  3. MYTELASE [Suspect]
     Route: 048
     Dates: start: 20120404, end: 20120412
  4. LEVOTHYROXINE SODIUM [Concomitant]
     Route: 048
  5. ALFUZOSIN HCL [Concomitant]
     Route: 048
  6. BISOPROLOL FUMARATE [Concomitant]
     Route: 048
  7. PENTOXIFYLLINE [Concomitant]
     Route: 048
  8. MYTELASE [Suspect]
     Indication: URINARY TRACT DISORDER
     Route: 048
     Dates: start: 20120327, end: 20120403

REACTIONS (4)
  - FIXED ERUPTION [None]
  - TOXIC SKIN ERUPTION [None]
  - OFF LABEL USE [None]
  - DERMATITIS BULLOUS [None]
